FAERS Safety Report 7002517-2 (Version None)
Quarter: 2010Q3

REPORT INFORMATION
  Report Type: 
  Country: None (occurrence: None)
  Receive Date: 20100920
  Receipt Date: 20100416
  Transmission Date: 20110219
  Serious: Yes (Other)
  Sender: FDA-Public Use
  Company Number: US-ASTRAZENECA-2009UW20761

PATIENT
  Sex: Male
  Weight: 92.5 kg

DRUGS (3)
  1. SEROQUEL [Suspect]
     Route: 048
     Dates: start: 20070320, end: 20070613
  2. XANAX [Concomitant]
     Dates: start: 20070320, end: 20070613
  3. LEXAPRO [Concomitant]
     Dates: start: 20070320, end: 20070613

REACTIONS (3)
  - DIABETES MELLITUS INADEQUATE CONTROL [None]
  - KETOACIDOSIS [None]
  - PANCREATITIS [None]
